FAERS Safety Report 4989597-0 (Version None)
Quarter: 2006Q2

REPORT INFORMATION
  Report Type: 
  Country: None (occurrence: None)
  Receive Date: 20060502
  Receipt Date: 20060202
  Transmission Date: 20061013
  Serious: Yes (Hospitalization)
  Sender: FDA-Public Use
  Company Number: US-MERCK-0602USA01760

PATIENT
  Age: 59 Year
  Sex: Female
  Weight: 80 kg

DRUGS (6)
  1. VIOXX [Suspect]
     Indication: ARTHRALGIA
     Route: 048
     Dates: start: 20010801, end: 20011201
  2. VIOXX [Suspect]
     Route: 048
     Dates: start: 20020101, end: 20020501
  3. VIOXX [Suspect]
     Route: 048
     Dates: start: 20021101, end: 20030701
  4. VIOXX [Suspect]
     Route: 048
     Dates: start: 20010801, end: 20011201
  5. VIOXX [Suspect]
     Route: 048
     Dates: start: 20020101, end: 20020501
  6. VIOXX [Suspect]
     Route: 048
     Dates: start: 20021101, end: 20030701

REACTIONS (27)
  - ABDOMINAL PAIN [None]
  - ACUTE MYOCARDIAL INFARCTION [None]
  - ANXIETY [None]
  - ARTERIOSCLEROSIS CORONARY ARTERY [None]
  - ASTHENIA [None]
  - BACK PAIN [None]
  - BLOOD PRESSURE INADEQUATELY CONTROLLED [None]
  - BRAIN HERNIATION [None]
  - BUNDLE BRANCH BLOCK LEFT [None]
  - CARDIAC FAILURE CONGESTIVE [None]
  - CHEST DISCOMFORT [None]
  - DEPRESSION [None]
  - DYSPNOEA EXERTIONAL [None]
  - FATIGUE [None]
  - GAIT DISTURBANCE [None]
  - HEADACHE [None]
  - HYPERLIPIDAEMIA [None]
  - HYPOTENSION [None]
  - INJURY [None]
  - INTERVERTEBRAL DISC DEGENERATION [None]
  - ISCHAEMIC CARDIOMYOPATHY [None]
  - MALIGNANT HYPERTENSION [None]
  - MYOCARDIAL ISCHAEMIA [None]
  - OBESITY [None]
  - SINUS BRADYCARDIA [None]
  - SPINAL OSTEOARTHRITIS [None]
  - UPPER RESPIRATORY TRACT INFECTION [None]
